FAERS Safety Report 16796211 (Version 7)
Quarter: 2020Q1

REPORT INFORMATION
  Report Type: Report from Study
  Country: US (occurrence: US)
  Receive Date: 20190911
  Receipt Date: 20200218
  Transmission Date: 20200409
  Serious: Yes (Hospitalization, Other)
  Sender: FDA-Public Use
  Company Number: US-ACTELION-A-NJ2019-195214

PATIENT
  Sex: Male
  Weight: 90.7 kg

DRUGS (3)
  1. SILDENAFIL CITRATE. [Concomitant]
     Active Substance: SILDENAFIL CITRATE
  2. OPSUMIT [Suspect]
     Active Substance: MACITENTAN
     Indication: PULMONARY HYPERTENSION
     Dosage: 10 MG, QD
     Route: 048
  3. FLU VACCINE VII [Concomitant]
     Active Substance: INFLUENZA VIRUS VACCINE
     Dosage: UNK
     Dates: start: 20190925

REACTIONS (9)
  - Dialysis [Unknown]
  - Device breakage [Unknown]
  - Therapy non-responder [Unknown]
  - Hallucination [Unknown]
  - Fatigue [Unknown]
  - Blood phosphorus increased [Unknown]
  - Dyspnoea exertional [Unknown]
  - Dialysis device insertion [Unknown]
  - Dyspnoea [Unknown]
